FAERS Safety Report 24284858 (Version 1)
Quarter: 2024Q3

REPORT INFORMATION
  Report Type: Spontaneous
  Country: US (occurrence: None)
  Receive Date: 20240904
  Receipt Date: 20240904
  Transmission Date: 20241017
  Serious: Yes (Other)
  Sender: Public
  Company Number: None

PATIENT
  Age: 62 Year
  Sex: Male
  Weight: 90.72 kg

DRUGS (5)
  1. AMIODARONE [Suspect]
     Active Substance: AMIODARONE
     Dosage: 1/2 TAAB 1 TIME PER DAY  MOUTH ?
     Route: 048
     Dates: start: 2020, end: 20210309
  2. ELIQUIS [Concomitant]
     Active Substance: APIXABAN
  3. MULTAQ [Concomitant]
     Active Substance: DRONEDARONE
  4. METOPROLOL TARTRATE [Concomitant]
     Active Substance: METOPROLOL TARTRATE
  5. DEVICE [Concomitant]
     Active Substance: DEVICE

REACTIONS (1)
  - Cornea verticillata [None]

NARRATIVE: CASE EVENT DATE: 20210309
